FAERS Safety Report 11164759 (Version 15)
Quarter: 2016Q1

REPORT INFORMATION
  Report Type: Spontaneous
  Country: US (occurrence: US)
  Receive Date: 20150604
  Receipt Date: 20160329
  Transmission Date: 20160525
  Serious: Yes (Other)
  Sender: FDA-Public Use
  Company Number: US-PFIZER INC-2015183243

PATIENT
  Age: 69 Year
  Sex: Male
  Weight: 75 kg

DRUGS (7)
  1. SUTENT [Suspect]
     Active Substance: SUNITINIB MALATE
     Dosage: 37.5 MG, CYCLIC (2 WEEKS ON/ 1WEEK OFF)
     Dates: start: 20150817, end: 2015
  2. GABAPENTIN. [Concomitant]
     Active Substance: GABAPENTIN
     Dosage: 300 MG, 3X/DAY
  3. SUTENT [Suspect]
     Active Substance: SUNITINIB MALATE
     Indication: METASTATIC RENAL CELL CARCINOMA
     Dosage: 50 MG, CYCLIC (2 WEEKS ON/ 1WEEK OFF)
     Dates: start: 20150506, end: 20150720
  4. CELECOXIB. [Concomitant]
     Active Substance: CELECOXIB
     Dosage: 200 MG, 2X/DAY
  5. MORPHINE [Concomitant]
     Active Substance: MORPHINE
     Dosage: UNK
     Dates: end: 20151123
  6. METOPROLOL TARTRATE. [Concomitant]
     Active Substance: METOPROLOL TARTRATE
     Dosage: 12.5 MG, 1X/DAY
  7. SUTENT [Suspect]
     Active Substance: SUNITINIB MALATE
     Dosage: 50 MG, CYCLIC (2WEEKS ON/1 WEEK OFF)
     Dates: start: 2015, end: 20160222

REACTIONS (31)
  - Disease progression [Unknown]
  - Insomnia [Recovered/Resolved]
  - Arthralgia [Unknown]
  - Decreased appetite [Unknown]
  - Peripheral swelling [Unknown]
  - Nasopharyngitis [Recovering/Resolving]
  - Hypoaesthesia [Unknown]
  - Fatigue [Unknown]
  - Rhinorrhoea [Unknown]
  - Dysphonia [Unknown]
  - Malaise [Recovered/Resolved]
  - Neuralgia [Unknown]
  - Pain in extremity [Recovering/Resolving]
  - Influenza [Unknown]
  - Dyspepsia [Unknown]
  - Cough [Unknown]
  - Groin pain [Unknown]
  - Dehydration [Unknown]
  - Dyspnoea [Unknown]
  - Metastatic renal cell carcinoma [Unknown]
  - Diarrhoea [Unknown]
  - Back pain [Recovering/Resolving]
  - Dry skin [Unknown]
  - Feeling of body temperature change [Unknown]
  - Lower respiratory tract infection [Unknown]
  - Platelet count decreased [Recovered/Resolved]
  - Dysstasia [Unknown]
  - Paraesthesia [Unknown]
  - Sneezing [Unknown]
  - Pain [Unknown]
  - Weight decreased [Unknown]

NARRATIVE: CASE EVENT DATE: 201505
